FAERS Safety Report 7974155-6 (Version None)
Quarter: 2011Q4

REPORT INFORMATION
  Report Type: 
  Country: None (occurrence: None)
  Receive Date: 20111213
  Receipt Date: 20111128
  Transmission Date: 20120403
  Serious: Yes (Other)
  Sender: FDA-Public Use
  Company Number: US-JUTA GMBH-2011-21223

PATIENT
  Age: 79 Year
  Sex: Female

DRUGS (2)
  1. TRIAMTERENE [Suspect]
     Indication: PRODUCT USED FOR UNKNOWN INDICATION
     Dosage: UNKNOWN
     Route: 065
  2. ANASTROZOLE [Suspect]
     Indication: BREAST CANCER
     Dosage: UNKNOWN
     Route: 065

REACTIONS (1)
  - TRANSIENT ACANTHOLYTIC DERMATOSIS [None]
